FAERS Safety Report 9285800 (Version 2)
Quarter: 2013Q2

REPORT INFORMATION
  Report Type: Spontaneous
  Country: IN (occurrence: None)
  Receive Date: 20130507
  Receipt Date: 20130517
  Transmission Date: 20140414
  Serious: Yes (Hospitalization, Other)
  Sender: FDA-Public Use
  Company Number: AUR-APL-2013-03600

PATIENT
  Age: 60 Year
  Sex: Male

DRUGS (4)
  1. RISPERIDONE [Suspect]
     Indication: SCHIZOPHRENIA, PARANOID TYPE
     Dosage: 4-6 MG/DAY, UNKNOWN
  2. RISPERIDONE [Suspect]
     Indication: PSYCHOTIC DISORDER
     Dosage: 4-6 MG/DAY, UNKNOWN
  3. OLANZAPINE (OLANZAPINE) [Suspect]
     Indication: SCHIZOPHRENIA, PARANOID TYPE
     Dates: start: 2008
  4. TRIHEXYPHENIDYL (TRIHEXYPHENIDYL) [Concomitant]

REACTIONS (4)
  - Parkinsonism [None]
  - Psychotic disorder [None]
  - Condition aggravated [None]
  - Extrapyramidal disorder [None]
